FAERS Safety Report 5298369-1 (Version None)
Quarter: 2007Q2

REPORT INFORMATION
  Report Type: 
  Country: None (occurrence: None)
  Receive Date: 20070406
  Receipt Date: 20070322
  Transmission Date: 20071010
  Serious: Yes (Hospitalization)
  Sender: FDA-Public Use
  Company Number: S07-FRA-01270-01

PATIENT
  Age: 18 Year
  Sex: Female
  Weight: 46 kg

DRUGS (4)
  1. ESCITALOPRAM [Suspect]
     Dates: start: 20070201, end: 20070222
  2. ESCITALOPRAM [Suspect]
     Dates: start: 20070305, end: 20070306
  3. ZYPREXA [Concomitant]
  4. SPEKTRAMOX [Concomitant]

REACTIONS (2)
  - NEUTROPENIA [None]
  - SINUSITIS [None]
